FAERS Safety Report 23111173 (Version 1)
Quarter: 2023Q4

REPORT INFORMATION
  Report Type: Spontaneous
  Country: DE (occurrence: DE)
  Receive Date: 20231026
  Receipt Date: 20231026
  Transmission Date: 20240109
  Serious: Yes (Other)
  Sender: FDA-Public Use
  Company Number: DE-JAZZ-2021-DE-002253

PATIENT
  Sex: Male

DRUGS (17)
  1. DEFITELIO [Suspect]
     Active Substance: DEFIBROTIDE SODIUM
     Indication: Venoocclusive disease
     Dosage: 4X150 MG/D X21 D (FROM 23-SEP TO 14-OCT)
     Route: 042
  2. DEFITELIO [Suspect]
     Active Substance: DEFIBROTIDE SODIUM
     Dosage: FOM 31-OCT TO 11-NOV
     Route: 042
  3. HEPARIN [Concomitant]
     Active Substance: HEPARIN SODIUM
     Indication: Product used for unknown indication
     Dosage: 80 U/KG/D STARTED ON 11-SEP
  4. MEROPENEM [Concomitant]
     Active Substance: MEROPENEM
     Indication: Product used for unknown indication
     Dosage: STARTED ON 12-SEP
  5. VANCOMYCIN [Concomitant]
     Active Substance: VANCOMYCIN
     Indication: Product used for unknown indication
     Dosage: STARTED ON 12-SEP
  6. AMBISOME [Concomitant]
     Active Substance: AMPHOTERICIN B
     Indication: Product used for unknown indication
     Dosage: STARTED ON 12-SEP
  7. MYCOPHENOLATE MOFETIL [Concomitant]
     Active Substance: MYCOPHENOLATE MOFETIL
     Indication: Product used for unknown indication
     Dosage: 23-SEP
  8. PREDNISONE ACETATE [Concomitant]
     Active Substance: PREDNISONE ACETATE
     Indication: Product used for unknown indication
     Dosage: 23-SEP TO 01-OCT 2 MG/KG
  9. TEICOPLANIN [Concomitant]
     Active Substance: TEICOPLANIN
     Indication: Product used for unknown indication
  10. TACROLIMUS [Concomitant]
     Active Substance: TACROLIMUS
     Indication: Product used for unknown indication
     Dosage: 29-SEP TO 16-OCT
  11. TACROLIMUS [Concomitant]
     Active Substance: TACROLIMUS
     Dosage: 31-OCT TO 03-NOV
     Route: 048
  12. CYCLOSPORINE [Concomitant]
     Active Substance: CYCLOSPORINE
     Indication: Product used for unknown indication
     Dosage: 17-OCT TO 3-NOV
  13. CLARITHROMYCIN [Concomitant]
     Active Substance: CLARITHROMYCIN
     Indication: Product used for unknown indication
     Dosage: 16-OCT TO 23-OCT
  14. GANCICLOVIR [Concomitant]
     Active Substance: GANCICLOVIR
     Indication: Product used for unknown indication
     Dosage: 17-OCT TO 27-OCT
  15. CLINDAMYCIN [Concomitant]
     Active Substance: CLINDAMYCIN
     Indication: Product used for unknown indication
     Dosage: 19-OCT TO 25-OCT
  16. ACYCLOVIR [Concomitant]
     Active Substance: ACYCLOVIR
     Indication: Product used for unknown indication
     Dosage: RESTARTED ON 28-OCT
  17. PREDNISOLONE [Concomitant]
     Active Substance: PREDNISOLONE
     Indication: Product used for unknown indication
     Dosage: FROM 31-OCT TO 13-NOV 2 MG/KG, THEN REDUCTION

REACTIONS (7)
  - Graft versus host disease in skin [Unknown]
  - Device related infection [Unknown]
  - Atypical pneumonia [Unknown]
  - Venoocclusive disease [Unknown]
  - Disease recurrence [Unknown]
  - Vomiting [Unknown]
  - Off label use [Unknown]
